FAERS Safety Report 14862048 (Version 2)
Quarter: 2018Q2

REPORT INFORMATION
  Report Type: Spontaneous
  Country: DE (occurrence: DE)
  Receive Date: 20180508
  Receipt Date: 20180508
  Transmission Date: 20180711
  Serious: Yes (Other)
  Sender: FDA-Public Use
  Company Number: PHHY2017DE037262

PATIENT
  Sex: Female

DRUGS (4)
  1. FAMPYRA [Concomitant]
     Active Substance: DALFAMPRIDINE
     Indication: PRODUCT USED FOR UNKNOWN INDICATION
     Route: 065
  2. METOHEXAL [Suspect]
     Active Substance: METOPROLOL SUCCINATE
     Indication: FLUID RETENTION
     Dosage: 1 DF, BID
     Route: 065
     Dates: start: 201702
  3. METOHEXAL [Suspect]
     Active Substance: METOPROLOL SUCCINATE
     Dosage: 0.5 DF, BID
     Route: 065
  4. GILENYA [Suspect]
     Active Substance: FINGOLIMOD HYDROCHLORIDE
     Indication: MULTIPLE SCLEROSIS
     Dosage: UNK
     Route: 065
     Dates: start: 2013

REACTIONS (11)
  - Asthenia [Unknown]
  - Mental disorder [Unknown]
  - Fatigue [Unknown]
  - Sensory disturbance [Unknown]
  - Vestibular disorder [Unknown]
  - Liver function test abnormal [Unknown]
  - Fall [Unknown]
  - Motor dysfunction [Unknown]
  - Feeling cold [Unknown]
  - Lumbar vertebral fracture [Unknown]
  - Peripheral coldness [Unknown]
